FAERS Safety Report 5090754-6 (Version None)
Quarter: 2006Q3

REPORT INFORMATION
  Report Type: 
  Country: None (occurrence: None)
  Receive Date: 20060823
  Receipt Date: 20060809
  Transmission Date: 20061208
  Serious: Yes (Hospitalization)
  Sender: FDA-Public Use
  Company Number: FABR-11607

PATIENT
  Age: 59 Year
  Sex: Male

DRUGS (1)
  1. FABRAZYME [Suspect]
     Indication: FABRY'S DISEASE
     Dosage: 45 MG Q2WKS IV
     Route: 042
     Dates: start: 20060705

REACTIONS (5)
  - CHEST PAIN [None]
  - CHILLS [None]
  - MENINGITIS [None]
  - PYREXIA [None]
  - STREPTOCOCCAL INFECTION [None]
